FAERS Safety Report 6491200-8 (Version None)
Quarter: 2009Q4

REPORT INFORMATION
  Report Type: 
  Country: None (occurrence: None)
  Receive Date: 20091211
  Receipt Date: 20091130
  Transmission Date: 20100525
  Serious: Yes (Hospitalization, Other)
  Sender: FDA-Public Use
  Company Number: PHHY2009FR52687

PATIENT
  Age: 62 Year
  Sex: Male

DRUGS (3)
  1. CYCLOSPORINE [Suspect]
     Indication: HEART TRANSPLANT
  2. CORTICOSTEROIDS [Suspect]
     Indication: HEART TRANSPLANT
  3. EVEROLIMUS [Suspect]
     Indication: HEART TRANSPLANT
     Dosage: 1.5 MG/DAY

REACTIONS (6)
  - ACTINIC KERATOSIS [None]
  - BLADDER CANCER [None]
  - BOWEN'S DISEASE [None]
  - SKIN CANCER [None]
  - SQUAMOUS CELL CARCINOMA OF SKIN [None]
  - TRANSPLANT REJECTION [None]
